FAERS Safety Report 13026829 (Version 3)
Quarter: 2017Q1

REPORT INFORMATION
  Report Type: Report from Study
  Country: CA (occurrence: CA)
  Receive Date: 20161214
  Receipt Date: 20170116
  Transmission Date: 20170428
  Serious: Yes (Death, Hospitalization)
  Sender: FDA-Public Use
  Company Number: CA-TAKEDA-2016TUS020427

PATIENT
  Age: 76 Year
  Sex: Female

DRUGS (1)
  1. VEDOLIZUMAB [Suspect]
     Active Substance: VEDOLIZUMAB
     Indication: COLITIS ULCERATIVE
     Dosage: 300 MG, UNK
     Route: 042
     Dates: start: 20160901, end: 20161013

REACTIONS (9)
  - Venous thrombosis limb [Unknown]
  - General physical health deterioration [Unknown]
  - Off label use [Unknown]
  - Asthenia [Not Recovered/Not Resolved]
  - Colitis ulcerative [Unknown]
  - Thrombocytopenia [Unknown]
  - Death [Fatal]
  - Delirium [Unknown]
  - Vascular complication associated with device [Unknown]

NARRATIVE: CASE EVENT DATE: 2016
